FAERS Safety Report 13262233 (Version 1)
Quarter: 2017Q1

REPORT INFORMATION
  Report Type: Spontaneous
  Country: US (occurrence: US)
  Receive Date: 20170222
  Receipt Date: 20170222
  Transmission Date: 20170428
  Serious: Yes (Other)
  Sender: FDA-Public Use
  Company Number: PHHY2017US025322

PATIENT
  Age: 3 Year
  Sex: Male

DRUGS (4)
  1. CYCLOSPORINE. [Concomitant]
     Active Substance: CYCLOSPORINE
     Indication: STEM CELL TRANSPLANT
     Route: 065
  2. METHOTREXATE. [Suspect]
     Active Substance: METHOTREXATE
     Indication: PRODUCT USED FOR UNKNOWN INDICATION
     Dosage: 15 MG/M2, UNK
     Route: 065
  3. AMBISOME [Interacting]
     Active Substance: AMPHOTERICIN B
     Indication: PROPHYLAXIS
     Dosage: 3 MG/KG, QD
     Route: 065
  4. METHOTREXATE. [Interacting]
     Active Substance: METHOTREXATE
     Dosage: 10 MG/M2, UNK
     Route: 065

REACTIONS (4)
  - Acute kidney injury [Unknown]
  - Graft versus host disease in skin [Unknown]
  - Drug interaction [Unknown]
  - Drug clearance decreased [Unknown]
